FAERS Safety Report 7126151-9 (Version None)
Quarter: 2010Q4

REPORT INFORMATION
  Report Type: 
  Country: None (occurrence: None)
  Receive Date: 20101129
  Receipt Date: 20101116
  Transmission Date: 20110411
  Serious: Yes (Hospitalization)
  Sender: FDA-Public Use
  Company Number: JP-JNJFOC-20101107128

PATIENT
  Age: 91 Year
  Sex: Male

DRUGS (4)
  1. RISPERDAL [Suspect]
     Indication: BEHAVIOURAL AND PSYCHIATRIC SYMPTOMS OF DEMENTIA
     Route: 048
  2. PURSENNID [Concomitant]
     Route: 048
  3. BIO-THREE [Concomitant]
     Route: 048
  4. MILMAG [Concomitant]
     Route: 048

REACTIONS (3)
  - ALTERED STATE OF CONSCIOUSNESS [None]
  - MIOSIS [None]
  - PNEUMONIA [None]
